FAERS Safety Report 24463947 (Version 1)
Quarter: 2024Q4

REPORT INFORMATION
  Report Type: Report from Study
  Country: US (occurrence: US)
  Receive Date: 20241018
  Receipt Date: 20241018
  Transmission Date: 20250115
  Serious: No
  Sender: ROCHE
  Company Number: US-ROCHE-3499593

PATIENT
  Age: 40 Year
  Sex: Male

DRUGS (7)
  1. XOLAIR [Suspect]
     Active Substance: OMALIZUMAB
     Indication: Idiopathic urticaria
     Dosage: 150 MG : STREGNTH
     Route: 058
  2. XOLAIR [Suspect]
     Active Substance: OMALIZUMAB
  3. CROMOLYN [Concomitant]
     Active Substance: CROMOLYN
  4. ALLEGRA [Concomitant]
     Active Substance: FEXOFENADINE HYDROCHLORIDE
  5. BUDESONIDE [Concomitant]
     Active Substance: BUDESONIDE
  6. VENTOLIN [Concomitant]
     Active Substance: ALBUTEROL SULFATE
  7. DOXEPIN [Concomitant]
     Active Substance: DOXEPIN

REACTIONS (2)
  - Off label use [Unknown]
  - No adverse event [Unknown]
